FAERS Safety Report 8822963 (Version 2)
Quarter: 2015Q3

REPORT INFORMATION
  Report Type: Report from Study
  Country: US (occurrence: US)
  Receive Date: 20121003
  Receipt Date: 20150707
  Transmission Date: 20151125
  Serious: Yes (Death, Other)
  Sender: FDA-Public Use
  Company Number: US-ROCHE-1134110

PATIENT
  Sex: Male

DRUGS (18)
  1. RITUXAN [Suspect]
     Active Substance: RITUXIMAB
     Indication: RHEUMATOID ARTHRITIS
  2. SOLU-MEDROL [Concomitant]
     Active Substance: METHYLPREDNISOLONE SODIUM SUCCINATE
     Route: 042
  3. TYLENOL [Concomitant]
     Active Substance: ACETAMINOPHEN
     Route: 048
  4. DEMEROL [Concomitant]
     Active Substance: MEPERIDINE HYDROCHLORIDE
     Dosage: 50 MG/ML
     Route: 065
  5. KADIAN [Concomitant]
     Active Substance: MORPHINE SULFATE
     Route: 065
  6. ARANESP [Concomitant]
     Active Substance: DARBEPOETIN ALFA
  7. TYLENOL [Concomitant]
     Active Substance: ACETAMINOPHEN
     Route: 042
  8. PERCOCET [Concomitant]
     Active Substance: ACETAMINOPHEN\OXYCODONE HYDROCHLORIDE
  9. RITUXAN [Suspect]
     Active Substance: RITUXIMAB
     Indication: GRANULOMATOSIS WITH POLYANGIITIS
     Route: 042
     Dates: start: 20060803
  10. MS CONTIN [Concomitant]
     Active Substance: MORPHINE SULFATE
     Route: 065
  11. BENADRYL [Concomitant]
     Active Substance: DIPHENHYDRAMINE HYDROCHLORIDE
     Route: 042
  12. CYTOXAN [Concomitant]
     Active Substance: CYCLOPHOSPHAMIDE
     Route: 042
  13. LASIX [Concomitant]
     Active Substance: FUROSEMIDE
     Route: 042
  14. SOLU-MEDROL [Concomitant]
     Active Substance: METHYLPREDNISOLONE SODIUM SUCCINATE
     Route: 042
  15. HYDROCORTISONE. [Concomitant]
     Active Substance: HYDROCORTISONE
     Route: 042
  16. RITUXAN [Suspect]
     Active Substance: RITUXIMAB
     Indication: PULMONARY GRANULOMA
  17. PREDNISONE. [Concomitant]
     Active Substance: PREDNISONE
     Route: 065
  18. METHOTREXATE [Concomitant]
     Active Substance: METHOTREXATE
     Dosage: 10-25 MG
     Route: 065

REACTIONS (26)
  - Hearing impaired [Unknown]
  - Diplopia [Unknown]
  - Sinus headache [Unknown]
  - Erythema [Recovered/Resolved]
  - Chest pain [Unknown]
  - Dizziness [Unknown]
  - Eye swelling [Recovering/Resolving]
  - Periorbital oedema [Recovered/Resolved]
  - Nephrogenic anaemia [Unknown]
  - Dyspnoea [Unknown]
  - Asthenia [Unknown]
  - Mobility decreased [Unknown]
  - Back pain [Unknown]
  - Joint swelling [Unknown]
  - Oral pain [Unknown]
  - Acute myocardial infarction [Unknown]
  - Visual impairment [Unknown]
  - Fatigue [Unknown]
  - Ecchymosis [Unknown]
  - Disease progression [Unknown]
  - Sleep apnoea syndrome [Unknown]
  - Off label use [Unknown]
  - Death [Fatal]
  - Weight decreased [Unknown]
  - Osteoarthritis [Unknown]
  - Tremor [Unknown]
